FAERS Safety Report 4570778-5 (Version None)
Quarter: 2005Q1

REPORT INFORMATION
  Report Type: 
  Country: None (occurrence: None)
  Receive Date: 20050202
  Receipt Date: 20050121
  Transmission Date: 20050727
  Serious: Yes (Hospitalization)
  Sender: FDA-Public Use
  Company Number: 2005018726

PATIENT
  Age: 62 Year
  Sex: Female
  Weight: 53 kg

DRUGS (7)
  1. CABERGOLINE [Suspect]
     Indication: PARKINSON'S DISEASE
     Dosage: ORAL
     Route: 048
     Dates: start: 20040313, end: 20041211
  2. TELMISARTAN (TELMISARTAN) [Suspect]
     Indication: ILL-DEFINED DISORDER
     Dosage: ORAL
     Route: 048
  3. AMANTADINE HCL [Concomitant]
  4. SINEMET [Concomitant]
  5. IBUDILAST (IBUDILAST) [Concomitant]
  6. MECOBHALAMIN (MECOBALAMIN) [Concomitant]
  7. AROTINOLOL HYDROCHLORIDE (AROTINOLOL HYDROCHLORIDE) [Concomitant]

REACTIONS (1)
  - HEPATIC FUNCTION ABNORMAL [None]
